FAERS Safety Report 4886297-2 (Version None)
Quarter: 2006Q1

REPORT INFORMATION
  Report Type: 
  Country: None (occurrence: None)
  Receive Date: 20060118
  Receipt Date: 20060105
  Transmission Date: 20060701
  Serious: Yes (Other)
  Sender: FDA-Public Use
  Company Number: 2006005549

PATIENT
  Age: 21 Year
  Sex: Female

DRUGS (2)
  1. ZMAX [Suspect]
     Indication: ILL-DEFINED DISORDER
     Dosage: 2 GRAM (2 GRAM, 1 IN 1); ORAL
     Route: 048
     Dates: start: 20051221, end: 20051221
  2. GUAIFENESIN/HYDROCODONE/POTASSIUM (GUAIFENESIN, HYDROCODONE, POTASSIUM [Suspect]
     Indication: COUGH
     Dates: start: 20051221

REACTIONS (1)
  - CONVULSION [None]
